FAERS Safety Report 4383350-7 (Version None)
Quarter: 2004Q2

REPORT INFORMATION
  Report Type: 
  Country: None (occurrence: None)
  Receive Date: 20040618
  Receipt Date: 20040601
  Transmission Date: 20050107
  Serious: Yes (Hospitalization)
  Sender: FDA-Public Use
  Company Number: US_0405103279

PATIENT
  Age: 52 Year
  Sex: Female
  Weight: 84 kg

DRUGS (8)
  1. GEMCITABINE HYDROCHLORIDE-IV (GEMCITABINE) [Suspect]
     Indication: NON-SMALL CELL LUNG CANCER
     Dosage: 1000 MG/M2 OTHER
     Route: 050
     Dates: start: 20040112
  2. RADIOTHERAPY [Suspect]
     Indication: NON-SMALL CELL LUNG CANCER
     Dosage: 1.8 G/1 WEEK
     Dates: start: 20040112, end: 20040223
  3. CARBOPLATIN [Suspect]
     Indication: NON-SMALL CELL LUNG CANCER
     Dates: start: 20040323
  4. TYLENOL W/ CODEINE NO. 3 [Concomitant]
  5. SINGULAIR [Concomitant]
  6. ADVAIR HFA [Concomitant]
  7. PREVACID [Concomitant]
  8. ROBITUSSIN A-C [Concomitant]

REACTIONS (8)
  - ATELECTASIS [None]
  - BLOOD PRESSURE SYSTOLIC INCREASED [None]
  - DYSPHAGIA [None]
  - HAEMOGLOBIN DECREASED [None]
  - LUNG NEOPLASM [None]
  - OESOPHAGEAL STENOSIS [None]
  - PLATELET COUNT DECREASED [None]
  - RADIATION PNEUMONITIS [None]
